FAERS Safety Report 20392377 (Version 1)
Quarter: 2022Q1

REPORT INFORMATION
  Report Type: Spontaneous
  Country: CA (occurrence: CA)
  Receive Date: 20220128
  Receipt Date: 20220128
  Transmission Date: 20220423
  Serious: Yes (Other)
  Sender: FDA-Public Use
  Company Number: CA-JNJFOC-20220142707

PATIENT
  Age: 43 Year
  Sex: Male
  Weight: 52 kg

DRUGS (2)
  1. REMICADE [Suspect]
     Active Substance: INFLIXIMAB
     Indication: Crohn^s disease
     Route: 042
  2. PREDNISONE [Concomitant]
     Active Substance: PREDNISONE

REACTIONS (15)
  - Nervousness [Not Recovered/Not Resolved]
  - Infusion site extravasation [Recovered/Resolved]
  - Oral pruritus [Recovered/Resolved]
  - Tremor [Recovered/Resolved]
  - Anxiety [Recovered/Resolved]
  - Retching [Recovered/Resolved]
  - Heart rate abnormal [Recovered/Resolved]
  - Respiratory rate increased [Recovered/Resolved]
  - Body temperature fluctuation [Recovered/Resolved]
  - Nasopharyngitis [Recovered/Resolved]
  - Chills [Recovered/Resolved]
  - Blood pressure fluctuation [Recovered/Resolved]
  - Nausea [Not Recovered/Not Resolved]
  - Pruritus [Recovered/Resolved]
  - Off label use [Not Recovered/Not Resolved]
